FAERS Safety Report 14401911 (Version 1)
Quarter: 2018Q1

REPORT INFORMATION
  Report Type: Spontaneous
  Country: JP (occurrence: JP)
  Receive Date: 20180117
  Receipt Date: 20180117
  Transmission Date: 20180509
  Serious: Yes (Other)
  Sender: FDA-Public Use
  Company Number: JP-UNITED THERAPEUTICS-UNT-2015-014032

PATIENT
  Age: 70 Year
  Sex: Female
  Weight: 51 kg

DRUGS (56)
  1. PAXIL [Concomitant]
     Active Substance: PAROXETINE HYDROCHLORIDE
     Indication: DEPRESSION
     Dosage: UNK
     Route: 048
  2. SODIUM RABEPRAZOLE [Concomitant]
     Active Substance: RABEPRAZOLE SODIUM
     Indication: PROPHYLAXIS
     Dosage: UNK
     Route: 048
  3. ADEMPAS [Concomitant]
     Active Substance: RIOCIGUAT
     Indication: PULMONARY ARTERIAL HYPERTENSION
     Dosage: UNK
     Route: 048
     Dates: start: 20151124
  4. REMODULIN [Suspect]
     Active Substance: TREPROSTINIL
     Indication: SYSTEMIC SCLERODERMA
  5. REMODULIN [Suspect]
     Active Substance: TREPROSTINIL
     Indication: SJOGREN^S SYNDROME
  6. EPOPROSTENOL. [Suspect]
     Active Substance: EPOPROSTENOL
     Indication: PULMONARY ARTERIAL HYPERTENSION
     Dosage: UNK
     Route: 042
     Dates: start: 201506
  7. TRACLEER [Concomitant]
     Active Substance: BOSENTAN
     Indication: MIXED CONNECTIVE TISSUE DISEASE
  8. TRACLEER [Concomitant]
     Active Substance: BOSENTAN
     Indication: SJOGREN^S SYNDROME
  9. ADEMPAS [Concomitant]
     Active Substance: RIOCIGUAT
     Indication: SYSTEMIC SCLERODERMA
  10. ADEMPAS [Concomitant]
     Active Substance: RIOCIGUAT
     Indication: SJOGREN^S SYNDROME
  11. SILDENAFIL CITRATE. [Concomitant]
     Active Substance: SILDENAFIL CITRATE
     Indication: PRODUCT USED FOR UNKNOWN INDICATION
     Route: 048
  12. REMODULIN [Suspect]
     Active Substance: TREPROSTINIL
     Indication: CONNECTIVE TISSUE DISORDER
     Dosage: 0.048 ?G/KG, CONTINUING
     Route: 058
     Dates: start: 20151204
  13. EPOPROSTENOL. [Suspect]
     Active Substance: EPOPROSTENOL
     Indication: MIXED CONNECTIVE TISSUE DISEASE
  14. ADCIRCA [Concomitant]
     Active Substance: TADALAFIL
     Indication: SYSTEMIC SCLERODERMA
  15. TRACLEER [Concomitant]
     Active Substance: BOSENTAN
     Indication: PULMONARY ARTERIAL HYPERTENSION
     Dosage: UNK
     Route: 048
     Dates: start: 201004
  16. TRACLEER [Concomitant]
     Active Substance: BOSENTAN
     Indication: SYSTEMIC LUPUS ERYTHEMATOSUS
  17. SPIRONOLACTONE. [Concomitant]
     Active Substance: SPIRONOLACTONE
     Indication: RIGHT VENTRICULAR FAILURE
     Dosage: UNK
     Route: 048
  18. WYPAX [Concomitant]
     Active Substance: LORAZEPAM
     Indication: DEPRESSION
     Dosage: UNK
     Route: 048
  19. FERROUS SULFATE. [Concomitant]
     Active Substance: FERROUS SULFATE
     Indication: IRON DEFICIENCY ANAEMIA
     Dosage: UNK
     Route: 048
  20. WARFARIN [Concomitant]
     Active Substance: WARFARIN
     Indication: SJOGREN^S SYNDROME
  21. CEFZON [Concomitant]
     Active Substance: CEFDINIR
     Indication: SALIVARY GLAND CALCULUS
     Dosage: UNK
     Route: 048
     Dates: start: 20151204, end: 20151209
  22. REMODULIN [Suspect]
     Active Substance: TREPROSTINIL
     Indication: SYSTEMIC LUPUS ERYTHEMATOSUS
  23. EPOPROSTENOL. [Suspect]
     Active Substance: EPOPROSTENOL
     Indication: SYSTEMIC SCLERODERMA
  24. ADCIRCA [Concomitant]
     Active Substance: TADALAFIL
     Indication: CONNECTIVE TISSUE DISORDER
  25. ALENDRONATE SODIUM HYDRATE [Concomitant]
     Active Substance: ALENDRONATE SODIUM
     Indication: PROPHYLAXIS
     Dosage: UNK
     Route: 065
  26. WARFARIN [Concomitant]
     Active Substance: WARFARIN
     Indication: PULMONARY ARTERIAL HYPERTENSION
     Dosage: UNK
     Route: 048
  27. WARFARIN [Concomitant]
     Active Substance: WARFARIN
     Indication: MIXED CONNECTIVE TISSUE DISEASE
  28. WARFARIN [Concomitant]
     Active Substance: WARFARIN
     Indication: CONNECTIVE TISSUE DISORDER
  29. WARFARIN [Concomitant]
     Active Substance: WARFARIN
     Indication: SYSTEMIC LUPUS ERYTHEMATOSUS
  30. ADCIRCA [Concomitant]
     Active Substance: TADALAFIL
     Indication: PULMONARY ARTERIAL HYPERTENSION
     Dosage: UNK
     Route: 048
     Dates: start: 201011
  31. LUPRAC [Concomitant]
     Active Substance: TORSEMIDE
     Indication: RIGHT VENTRICULAR FAILURE
     Dosage: UNK
     Route: 048
  32. LEXOTAN [Concomitant]
     Active Substance: BROMAZEPAM
     Indication: DEPRESSION
     Dosage: UNK
     Route: 048
  33. CARELOAD [Concomitant]
     Active Substance: BERAPROST SODIUM
     Indication: SYSTEMIC SCLERODERMA
  34. ADEMPAS [Concomitant]
     Active Substance: RIOCIGUAT
     Indication: MIXED CONNECTIVE TISSUE DISEASE
  35. MACITENTAN [Concomitant]
     Active Substance: MACITENTAN
     Indication: PRODUCT USED FOR UNKNOWN INDICATION
     Route: 048
  36. ADCIRCA [Concomitant]
     Active Substance: TADALAFIL
     Indication: MIXED CONNECTIVE TISSUE DISEASE
  37. TRACLEER [Concomitant]
     Active Substance: BOSENTAN
     Indication: SYSTEMIC SCLERODERMA
  38. PREDONINE [Concomitant]
     Active Substance: PREDNISOLONE
     Indication: SYSTEMIC LUPUS ERYTHEMATOSUS
     Dosage: UNK
     Route: 065
  39. GASTROM [Concomitant]
     Active Substance: ECABET SODIUM
     Indication: PROPHYLAXIS
     Dosage: UNK
     Route: 048
  40. REMODULIN [Suspect]
     Active Substance: TREPROSTINIL
     Indication: MIXED CONNECTIVE TISSUE DISEASE
     Dosage: 0.120 ?G/KG, CONTINUING
     Route: 058
  41. EPOPROSTENOL. [Suspect]
     Active Substance: EPOPROSTENOL
     Indication: CONNECTIVE TISSUE DISORDER
     Dosage: 0.028 ?G/KG/MIN, CONTINUING
     Route: 042
     Dates: start: 20151204
  42. EPOPROSTENOL. [Suspect]
     Active Substance: EPOPROSTENOL
     Indication: SYSTEMIC LUPUS ERYTHEMATOSUS
  43. ADCIRCA [Concomitant]
     Active Substance: TADALAFIL
     Indication: SYSTEMIC LUPUS ERYTHEMATOSUS
  44. ADCIRCA [Concomitant]
     Active Substance: TADALAFIL
     Indication: SJOGREN^S SYNDROME
  45. TRACLEER [Concomitant]
     Active Substance: BOSENTAN
     Indication: CONNECTIVE TISSUE DISORDER
  46. K-SUPPLY [Concomitant]
     Active Substance: POTASSIUM CHLORIDE
     Indication: HYPOKALAEMIA
     Dosage: UNK
     Route: 048
  47. WARFARIN [Concomitant]
     Active Substance: WARFARIN
     Indication: SYSTEMIC SCLERODERMA
  48. CARELOAD [Concomitant]
     Active Substance: BERAPROST SODIUM
     Indication: PULMONARY ARTERIAL HYPERTENSION
     Dosage: UNK
     Route: 048
     Dates: start: 20151121
  49. CARELOAD [Concomitant]
     Active Substance: BERAPROST SODIUM
     Indication: SYSTEMIC LUPUS ERYTHEMATOSUS
  50. ADEMPAS [Concomitant]
     Active Substance: RIOCIGUAT
     Indication: CONNECTIVE TISSUE DISORDER
  51. REMODULIN [Suspect]
     Active Substance: TREPROSTINIL
     Indication: PULMONARY ARTERIAL HYPERTENSION
     Dosage: UNK
     Route: 058
     Dates: start: 20151028
  52. EPOPROSTENOL. [Suspect]
     Active Substance: EPOPROSTENOL
     Indication: SJOGREN^S SYNDROME
  53. CARELOAD [Concomitant]
     Active Substance: BERAPROST SODIUM
     Indication: CONNECTIVE TISSUE DISORDER
  54. CARELOAD [Concomitant]
     Active Substance: BERAPROST SODIUM
     Indication: MIXED CONNECTIVE TISSUE DISEASE
  55. CARELOAD [Concomitant]
     Active Substance: BERAPROST SODIUM
     Indication: SJOGREN^S SYNDROME
  56. ADEMPAS [Concomitant]
     Active Substance: RIOCIGUAT
     Indication: SYSTEMIC LUPUS ERYTHEMATOSUS

REACTIONS (14)
  - Epistaxis [Recovered/Resolved]
  - Malaise [Recovered/Resolved]
  - Infusion site warmth [Not Recovered/Not Resolved]
  - Pyrexia [Not Recovered/Not Resolved]
  - Oxygen saturation decreased [Recovered/Resolved]
  - Oedema peripheral [Recovered/Resolved]
  - Colon cancer [Unknown]
  - Infusion site erosion [Recovering/Resolving]
  - Infusion site discharge [Recovering/Resolving]
  - Infusion site induration [Not Recovered/Not Resolved]
  - Right ventricular failure [Recovering/Resolving]
  - Infusion site pain [Recovering/Resolving]
  - Infusion site swelling [Not Recovered/Not Resolved]
  - Infusion site erythema [Not Recovered/Not Resolved]

NARRATIVE: CASE EVENT DATE: 20151102
